FAERS Safety Report 13649412 (Version 1)
Quarter: 2017Q2

REPORT INFORMATION
  Report Type: Spontaneous
  Country: US (occurrence: US)
  Receive Date: 20170613
  Receipt Date: 20170613
  Transmission Date: 20170830
  Serious: Yes (Life-Threatening, Hospitalization, Disabling, Other)
  Sender: FDA-Public Use
  Company Number: US-TEVA-777474USA

PATIENT
  Sex: Male

DRUGS (3)
  1. CORDARONE [Suspect]
     Active Substance: AMIODARONE HYDROCHLORIDE
     Indication: ATRIAL FIBRILLATION
     Route: 065
  2. AMIODARONE [Suspect]
     Active Substance: AMIODARONE
     Indication: ATRIAL FIBRILLATION
     Route: 065
  3. PACERONE [Suspect]
     Active Substance: AMIODARONE HYDROCHLORIDE
     Indication: ATRIAL FIBRILLATION
     Route: 065

REACTIONS (22)
  - Toxicity to various agents [Unknown]
  - Irritability [Unknown]
  - Restlessness [Unknown]
  - Cardiomyopathy [Unknown]
  - Nervousness [Unknown]
  - Adverse event [Unknown]
  - Dyspnoea [Unknown]
  - Weight decreased [Unknown]
  - Wheezing [Unknown]
  - Cough [Unknown]
  - Gait disturbance [Unknown]
  - Cardiac failure congestive [Unknown]
  - Interstitial lung disease [Not Recovered/Not Resolved]
  - Oedema [Unknown]
  - Disturbance in attention [Unknown]
  - Chest pain [Unknown]
  - Off label use [Unknown]
  - Asthenia [Unknown]
  - Depression [Unknown]
  - Pulmonary embolism [Unknown]
  - Fatigue [Unknown]
  - Pneumonia [Unknown]

NARRATIVE: CASE EVENT DATE: 200906
